FAERS Safety Report 14340264 (Version 1)
Quarter: 2018Q1

REPORT INFORMATION
  Report Type: Spontaneous
  Country: SE (occurrence: SE)
  Receive Date: 20180101
  Receipt Date: 20180101
  Transmission Date: 20180509
  Serious: Yes (Other)
  Sender: FDA-Public Use
  Company Number: SE-TEVA-2017-SE-837758

PATIENT
  Sex: Female

DRUGS (1)
  1. SERTRALINE [Suspect]
     Active Substance: SERTRALINE HYDROCHLORIDE
     Dosage: STARTED AT 25 MG DAILY AND INCREASED GRADUALLY TO 100 MG DAILY
     Route: 048
     Dates: start: 20170927

REACTIONS (2)
  - Asocial behaviour [Unknown]
  - Impulse-control disorder [Recovered/Resolved]
